FAERS Safety Report 20318660 (Version 1)
Quarter: 2022Q1

REPORT INFORMATION
  Report Type: Spontaneous
  Country: IT (occurrence: IT)
  Receive Date: 20220110
  Receipt Date: 20220110
  Transmission Date: 20220424
  Serious: Yes (Hospitalization)
  Sender: FDA-Public Use
  Company Number: None

PATIENT
  Age: 50 Year
  Sex: Male
  Weight: 76 kg

DRUGS (1)
  1. TAMSULOSIN [Suspect]
     Active Substance: TAMSULOSIN
     Indication: Urinary retention
     Dosage: 4 MILLIGRAM, QD
     Route: 048
     Dates: start: 20160301, end: 20201019

REACTIONS (5)
  - Deafness unilateral [Unknown]
  - Vertigo [Unknown]
  - Sexual dysfunction [Unknown]
  - Amnesia [Unknown]
  - Asthenia [Unknown]

NARRATIVE: CASE EVENT DATE: 20160301
